FAERS Safety Report 22606787 (Version 1)
Quarter: 2023Q2

REPORT INFORMATION
  Report Type: Report from Study
  Country: US (occurrence: US)
  Receive Date: 20230615
  Receipt Date: 20230615
  Transmission Date: 20230721
  Serious: Yes (Other)
  Sender: FDA-Public Use
  Company Number: US-002147023-NVSC2023US133630

PATIENT
  Age: 71 Year
  Sex: Female
  Weight: 137 kg

DRUGS (2)
  1. LEQVIO [Suspect]
     Active Substance: INCLISIRAN SODIUM
     Indication: Product used for unknown indication
     Dosage: 1 DOSAGE FORM (1 INJECTION)
     Route: 065
  2. LEQVIO [Suspect]
     Active Substance: INCLISIRAN SODIUM
     Dosage: 284 MG, EVERY SIX MONTHS
     Route: 058
     Dates: start: 20230410

REACTIONS (9)
  - Bronchitis [Recovered/Resolved]
  - Oropharyngeal pain [Recovered/Resolved]
  - Paranasal sinus hypersecretion [Unknown]
  - Pulmonary congestion [Unknown]
  - Productive cough [Recovered/Resolved]
  - Secretion discharge [Unknown]
  - Urinary tract infection [Not Recovered/Not Resolved]
  - Pollakiuria [Unknown]
  - Pelvic pain [Unknown]

NARRATIVE: CASE EVENT DATE: 20230508
